FAERS Safety Report 4899161-X (Version None)
Quarter: 2006Q1

REPORT INFORMATION
  Report Type: 
  Country: None (occurrence: None)
  Receive Date: 20060130
  Receipt Date: 20060113
  Transmission Date: 20060701
  Serious: Yes (Death, Hospitalization)
  Sender: FDA-Public Use
  Company Number: 2006000120

PATIENT
  Age: 58 Year
  Sex: Female

DRUGS (6)
  1. ERLOTINIB HCL (TABLET) [Suspect]
     Indication: NON-SMALL CELL LUNG CANCER
     Dosage: 150 MG (QD), ORAL
     Route: 048
     Dates: start: 20051212
  2. ORAMORPH SR [Concomitant]
  3. MYCOSTATIN [Concomitant]
  4. NEXIUM [Concomitant]
  5. XANAX [Concomitant]
  6. MOBIC [Concomitant]

REACTIONS (6)
  - CARDIO-RESPIRATORY ARREST [None]
  - GENERAL PHYSICAL HEALTH DETERIORATION [None]
  - HAEMOGLOBIN DECREASED [None]
  - HAEMOPTYSIS [None]
  - RED BLOOD CELL COUNT DECREASED [None]
  - SUDDEN DEATH [None]
